FAERS Safety Report 24759223 (Version 1)
Quarter: 2024Q4

REPORT INFORMATION
  Report Type: Report from Study
  Country: GB (occurrence: GB)
  Receive Date: 20241220
  Receipt Date: 20241220
  Transmission Date: 20250114
  Serious: Yes (Other)
  Sender: RANBAXY
  Company Number: GB-SUN PHARMACEUTICAL INDUSTRIES LTD-2024R1-485687

PATIENT
  Age: 9 Year
  Sex: Female

DRUGS (6)
  1. HYDROXYCHLOROQUINE [Suspect]
     Active Substance: HYDROXYCHLOROQUINE
     Indication: Butterfly rash
     Dosage: 6.5 MILLIGRAM/KILOGRAM, QD
     Route: 065
  2. HYDROXYCHLOROQUINE [Suspect]
     Active Substance: HYDROXYCHLOROQUINE
     Indication: Lymphadenopathy
  3. HYDROXYCHLOROQUINE [Suspect]
     Active Substance: HYDROXYCHLOROQUINE
     Indication: Proteinuria
  4. PREDNISOLONE [Suspect]
     Active Substance: PREDNISOLONE
     Indication: Butterfly rash
     Dosage: 1 MILLIGRAM/KILOGRAM, DAILY
     Route: 048
  5. PREDNISOLONE [Suspect]
     Active Substance: PREDNISOLONE
     Indication: Lymphadenopathy
  6. PREDNISOLONE [Suspect]
     Active Substance: PREDNISOLONE
     Indication: Proteinuria

REACTIONS (1)
  - Disease progression [Unknown]
